FAERS Safety Report 14611245 (Version 1)
Quarter: 2018Q1

REPORT INFORMATION
  Report Type: Spontaneous
  Country: FR (occurrence: FR)
  Receive Date: 20180308
  Receipt Date: 20180308
  Transmission Date: 20180509
  Serious: Yes (Other)
  Sender: FDA-Public Use
  Company Number: FR-MERCK KGAA-2043231

PATIENT
  Age: 68 Year
  Sex: Female

DRUGS (6)
  1. NOVOTHYROX [Suspect]
     Active Substance: LEVOTHYROXINE SODIUM
     Indication: THYROIDECTOMY
     Route: 048
     Dates: start: 20170501
  2. BISOPROLOL [Concomitant]
     Active Substance: BISOPROLOL
  3. METOJECT [Concomitant]
     Active Substance: METHOTREXATE SODIUM
  4. BETAMETHASONE. [Concomitant]
     Active Substance: BETAMETHASONE
  5. VALSARTAN. [Concomitant]
     Active Substance: VALSARTAN
  6. ALPRAZOLAM. [Concomitant]
     Active Substance: ALPRAZOLAM

REACTIONS (6)
  - Product formulation issue [Recovered/Resolved]
  - Blood thyroid stimulating hormone increased [Recovered/Resolved]
  - Depression [Recovered/Resolved]
  - Fatigue [Recovering/Resolving]
  - Chest pain [Recovered/Resolved]
  - Hypotension [Recovered/Resolved]

NARRATIVE: CASE EVENT DATE: 20170601
